FAERS Safety Report 5038201-4 (Version None)
Quarter: 2006Q2

REPORT INFORMATION
  Report Type: 
  Country: None (occurrence: None)
  Receive Date: 20060622
  Receipt Date: 20060609
  Transmission Date: 20061013
  Serious: Yes (Other)
  Sender: FDA-Public Use
  Company Number: 2005156812

PATIENT
  Age: 92 Year
  Sex: Female
  Weight: 46.7205 kg

DRUGS (11)
  1. GABAPENTIN [Suspect]
     Indication: NEURALGIA
     Dosage: 300 MG (100 MG, 3 IN 1 D)
     Dates: start: 20050822, end: 20051021
  2. LYRICA [Suspect]
     Indication: POST HERPETIC NEURALGIA
     Dosage: 50 MG (50 MG, 1 IN 1 D), ORAL
     Route: 048
     Dates: start: 20060501
  3. LOTENSIN [Concomitant]
  4. FOLIC ACID [Concomitant]
  5. PLAVIX [Concomitant]
  6. ASPIRIN [Concomitant]
  7. ZOCOR [Concomitant]
  8. CARDIZEM [Concomitant]
  9. AGGRENOX [Concomitant]
  10. PRILOSEC [Concomitant]
  11. AMBIEN [Concomitant]

REACTIONS (14)
  - BALANCE DISORDER [None]
  - CEREBROVASCULAR ACCIDENT [None]
  - DIZZINESS [None]
  - DRUG INEFFECTIVE [None]
  - DYSARTHRIA [None]
  - FACIAL PALSY [None]
  - HERPES ZOSTER [None]
  - NEURALGIA [None]
  - OEDEMA PERIPHERAL [None]
  - POST HERPETIC NEURALGIA [None]
  - SEASONAL ALLERGY [None]
  - TRANSIENT ISCHAEMIC ATTACK [None]
  - VISION BLURRED [None]
  - WALKING AID USER [None]
